FAERS Safety Report 8515962-0 (Version None)
Quarter: 2012Q3

REPORT INFORMATION
  Report Type: 
  Country: None (occurrence: None)
  Receive Date: 20120717
  Receipt Date: 20120703
  Transmission Date: 20120928
  Serious: No
  Sender: FDA-Public Use
  Company Number: US-ASTRAZENECA-2009UW14760

PATIENT
  Age: 57 Year
  Sex: Female
  Weight: 50.8 kg

DRUGS (6)
  1. SYMBICORT [Suspect]
     Dosage: TOOK FIVE DOSES ONE PUFF BID
     Route: 055
     Dates: start: 20091013
  2. ALBUTEROL [Concomitant]
  3. RESCUE INHALER [Concomitant]
  4. SYMBICORT [Suspect]
     Indication: ASTHMA
     Dosage: 320 MCGS, 1 PUFF BID
     Route: 055
  5. EPIPEN [Concomitant]
  6. SYMBICORT [Suspect]
     Dosage: 160/4.5, ONE PUFF QD
     Route: 055

REACTIONS (6)
  - STRESS [None]
  - DRUG INEFFECTIVE [None]
  - SINUS DISORDER [None]
  - MULTIPLE ALLERGIES [None]
  - ASTHMA [None]
  - INTENTIONAL DRUG MISUSE [None]
